FAERS Safety Report 6700636-9 (Version None)
Quarter: 2010Q2

REPORT INFORMATION
  Report Type: 
  Country: None (occurrence: None)
  Receive Date: 20100428
  Receipt Date: 20100421
  Transmission Date: 20101027
  Serious: Yes (Death)
  Sender: FDA-Public Use
  Company Number: DE-WYE-G05998610

PATIENT
  Age: 60 Year
  Sex: Female
  Weight: 55 kg

DRUGS (11)
  1. TAZOBAC EF [Suspect]
     Route: 042
     Dates: start: 20100225, end: 20100311
  2. CATAPRESAN [Suspect]
     Dosage: 0.3 - 1.7 MG DAILY
     Route: 042
     Dates: start: 20100228, end: 20100315
  3. FUROSEMIDE [Suspect]
     Dosage: 40-400 MG DAILY
     Route: 042
     Dates: start: 20100224, end: 20100312
  4. XENETIX [Suspect]
     Dosage: 100 ML
     Route: 042
     Dates: start: 20100305, end: 20100305
  5. HALOPERIDOL [Suspect]
     Route: 042
     Dates: start: 20100303, end: 20100306
  6. VESDIL [Suspect]
     Dosage: 2.5-10 MG DAILY
     Route: 048
     Dates: start: 20100301, end: 20100304
  7. VESDIL [Suspect]
     Dosage: 2.5-10 MG DAILY
     Route: 048
     Dates: start: 20100307, end: 20100308
  8. PARTUSISTEN [Suspect]
     Dosage: NEARLY 1 MG DAILY
     Route: 042
     Dates: start: 20100303, end: 20100315
  9. KETAMINE [Suspect]
     Dosage: 10-200 MG DAILY
     Route: 042
     Dates: start: 20100224, end: 20100225
  10. KETAMINE [Suspect]
     Dosage: 10-200 MG DAILY
     Route: 042
     Dates: start: 20100302, end: 20100311
  11. SANDOSTATIN [Suspect]
     Route: 058
     Dates: start: 20100303, end: 20100310

REACTIONS (3)
  - AGRANULOCYTOSIS [None]
  - CONDITION AGGRAVATED [None]
  - RESPIRATORY TRACT INFECTION [None]
